FAERS Safety Report 6125050-9 (Version None)
Quarter: 2009Q1

REPORT INFORMATION
  Report Type: 
  Country: None (occurrence: None)
  Receive Date: 20090318
  Receipt Date: 20090310
  Transmission Date: 20090719
  Serious: Yes (Death, Hospitalization)
  Sender: FDA-Public Use
  Company Number: 2009US000649

PATIENT
  Age: 51 Year
  Sex: Female

DRUGS (1)
  1. PROGRAF [Suspect]
     Indication: STEM CELL TRANSPLANT
     Dates: end: 20090116

REACTIONS (4)
  - GRAFT VERSUS HOST DISEASE IN LUNG [None]
  - LUNG INFECTION [None]
  - RESPIRATORY FAILURE [None]
  - SUPERINFECTION [None]
